FAERS Safety Report 4703071-8 (Version None)
Quarter: 2005Q2

REPORT INFORMATION
  Report Type: 
  Country: None (occurrence: None)
  Receive Date: 20050628
  Receipt Date: 20050628
  Transmission Date: 20051028
  Serious: No
  Sender: FDA-Public Use
  Company Number: None

PATIENT
  Age: 52 Year
  Sex: Female

DRUGS (2)
  1. WELLBUTRIN [Suspect]
     Indication: DEPRESSION
     Dosage: 75MG X1 PO
     Route: 048
  2. WELLBUTRIN [Suspect]
     Dosage: 100 MG X1 PO
     Route: 048

REACTIONS (6)
  - ASTHENIA [None]
  - CONDITION AGGRAVATED [None]
  - GOUT [None]
  - HEADACHE [None]
  - MUSCLE SPASMS [None]
  - PARAESTHESIA [None]
